FAERS Safety Report 7970128-8 (Version None)
Quarter: 2011Q4

REPORT INFORMATION
  Report Type: 
  Country: None (occurrence: None)
  Receive Date: 20111212
  Receipt Date: 20111130
  Transmission Date: 20120403
  Serious: Yes (Other)
  Sender: FDA-Public Use
  Company Number: US-JNJFOC-20111200644

PATIENT
  Sex: Female
  Weight: 36.29 kg

DRUGS (6)
  1. REMICADE [Suspect]
     Indication: JUVENILE ARTHRITIS
     Route: 042
     Dates: start: 20111107
  2. ARAVA [Concomitant]
     Route: 048
     Dates: start: 20110822
  3. REMICADE [Suspect]
     Route: 042
     Dates: start: 20110822, end: 20111107
  4. PREDNISONE TAB [Concomitant]
     Route: 048
     Dates: start: 20010101
  5. NEURONTIN [Concomitant]
     Indication: MUSCLE SPASMS
     Route: 048
     Dates: start: 20110822
  6. MEDROL [Concomitant]
     Indication: PREMEDICATION
     Route: 042
     Dates: start: 20110822, end: 20110101

REACTIONS (11)
  - DRUG INEFFECTIVE [None]
  - MOBILITY DECREASED [None]
  - AMENORRHOEA [None]
  - PYREXIA [None]
  - WEIGHT INCREASED [None]
  - BLOOD URINE PRESENT [None]
  - RESTLESS LEGS SYNDROME [None]
  - FEELING ABNORMAL [None]
  - MENSTRUATION IRREGULAR [None]
  - NIGHT SWEATS [None]
  - RENAL PAIN [None]
